FAERS Safety Report 5713245-5 (Version None)
Quarter: 2008Q2

REPORT INFORMATION
  Report Type: 
  Country: None (occurrence: None)
  Receive Date: 20080422
  Receipt Date: 20080410
  Transmission Date: 20081010
  Serious: Yes (Other)
  Sender: FDA-Public Use
  Company Number: FR-PFIZER INC-2008031716

PATIENT
  Sex: Male

DRUGS (2)
  1. XANAX [Suspect]
     Dosage: DAILY DOSE:.5MG
  2. SEROPRAM [Concomitant]

REACTIONS (13)
  - AGITATION [None]
  - ANXIETY [None]
  - CONFUSIONAL STATE [None]
  - FATIGUE [None]
  - LIBIDO DISORDER [None]
  - MOVEMENT DISORDER [None]
  - NIGHTMARE [None]
  - PANIC REACTION [None]
  - SENSE OF OPPRESSION [None]
  - STRESS [None]
  - TETANUS [None]
  - VERTIGO [None]
  - VISUAL DISTURBANCE [None]
